FAERS Safety Report 25936724 (Version 1)
Quarter: 2025Q4

REPORT INFORMATION
  Report Type: Spontaneous
  Country: EU (occurrence: EU)
  Receive Date: 20251017
  Receipt Date: 20251017
  Transmission Date: 20260117
  Serious: Yes (Hospitalization)
  Sender: MERCK SHARP & DOHME LLC
  Company Number: None

PATIENT
  Age: 80 Year
  Sex: Female
  Weight: 86.1 kg

DRUGS (3)
  1. PEMBROLIZUMAB [Suspect]
     Active Substance: PEMBROLIZUMAB
     Indication: Neuroendocrine carcinoma
     Route: 042
     Dates: start: 20250915
  2. MEKTOVI [Suspect]
     Active Substance: BINIMETINIB
     Indication: Neuroendocrine carcinoma
     Dosage: STRENGTH: 15 MG, FORM: FILM-COATED TABLET
     Route: 048
     Dates: start: 20250915, end: 20250926
  3. BRAFTOVI [Suspect]
     Active Substance: ENCORAFENIB
     Indication: Neuroendocrine carcinoma
     Route: 048
     Dates: start: 20250915, end: 20250926

REACTIONS (1)
  - Myalgia [Not Recovered/Not Resolved]

NARRATIVE: CASE EVENT DATE: 20250920
